FAERS Safety Report 7865206-8 (Version None)
Quarter: 2011Q4

REPORT INFORMATION
  Report Type: 
  Country: None (occurrence: None)
  Receive Date: 20111028
  Receipt Date: 20101101
  Transmission Date: 20120403
  Serious: No
  Sender: FDA-Public Use
  Company Number: US-GLAXOSMITHKLINE-A0889965A

PATIENT
  Age: 76 Year
  Sex: Female

DRUGS (7)
  1. LEVOXYL [Concomitant]
  2. ASPIRIN [Concomitant]
  3. ANTI-CHOLESTEROL MEDICATION [Concomitant]
  4. ATENOLOL [Concomitant]
  5. FELODIPINE [Concomitant]
  6. HYDROCHLOROTHIAZIDE [Concomitant]
  7. ADVAIR DISKUS 100/50 [Suspect]
     Indication: PRODUCT USED FOR UNKNOWN INDICATION
     Dosage: 1PUFF TWICE PER DAY
     Route: 055
     Dates: start: 20101029

REACTIONS (2)
  - DRUG INEFFECTIVE [None]
  - DYSPNOEA [None]
